FAERS Safety Report 7543487-8 (Version None)
Quarter: 2011Q2

REPORT INFORMATION
  Report Type: 
  Country: None (occurrence: None)
  Receive Date: 20110613
  Receipt Date: 20110530
  Transmission Date: 20111010
  Serious: No
  Sender: FDA-Public Use
  Company Number: CZ-UCBSA-033543

PATIENT
  Sex: Female

DRUGS (3)
  1. CERTOLIZUMAB PEGOL [Suspect]
     Indication: CROHN'S DISEASE
     Route: 058
     Dates: start: 20021105, end: 20100907
  2. CERTOLIZUMAB PEGOL [Suspect]
     Indication: INFLAMMATORY BOWEL DISEASE
     Route: 058
     Dates: start: 20021105, end: 20100907
  3. AZATHIOPRINE [Concomitant]
     Dosage: 125 MG

REACTIONS (1)
  - RASH [None]
